FAERS Safety Report 19429164 (Version 4)
Quarter: 2021Q3

REPORT INFORMATION
  Report Type: Spontaneous
  Country: US (occurrence: US)
  Receive Date: 20210617
  Receipt Date: 20210722
  Transmission Date: 20211014
  Serious: Yes (Other)
  Sender: FDA-Public Use
  Company Number: US-009507513-2106USA002647

PATIENT
  Age: 38 Year
  Sex: Female
  Weight: 78.91 kg

DRUGS (1)
  1. BELSOMRA [Suspect]
     Active Substance: SUVOREXANT
     Indication: INSOMNIA
     Dosage: 20 MILLIGRAM NIGHTLY
     Route: 048
     Dates: start: 20210204

REACTIONS (2)
  - Road traffic accident [Unknown]
  - Somnolence [Unknown]

NARRATIVE: CASE EVENT DATE: 202102
